FAERS Safety Report 12450622 (Version 1)
Quarter: 2016Q2

REPORT INFORMATION
  Report Type: Spontaneous
  Country: FR (occurrence: None)
  Receive Date: 20160608
  Receipt Date: 20160608
  Transmission Date: 20160815
  Serious: No
  Sender: FDA-Public Use
  Company Number: None

PATIENT
  Age: 61 Year
  Sex: Male
  Weight: 77 kg

DRUGS (4)
  1. OFLOXACIN, 200 MG BIOGARAN [Suspect]
     Active Substance: OFLOXACIN
     Indication: PRODUCT USED FOR UNKNOWN INDICATION
     Route: 048
     Dates: start: 20160601, end: 20160606
  2. PARACETAMOL [Concomitant]
     Active Substance: ACETAMINOPHEN
  3. ENAPRIL+AMLODIPINE [Concomitant]
  4. DESLORATADINE. [Concomitant]
     Active Substance: DESLORATADINE

REACTIONS (1)
  - Arthralgia [None]

NARRATIVE: CASE EVENT DATE: 20160606
